FAERS Safety Report 6755495-5 (Version None)
Quarter: 2010Q2

REPORT INFORMATION
  Report Type: 
  Country: None (occurrence: None)
  Receive Date: 20100528
  Receipt Date: 20100524
  Transmission Date: 20101027
  Serious: Yes (Death)
  Sender: FDA-Public Use
  Company Number: 2010SP028883

PATIENT
  Age: 56 Year
  Sex: Female
  Weight: 71.9 kg

DRUGS (8)
  1. TEMODAL [Suspect]
     Indication: ANAPLASTIC ASTROCYTOMA
     Dosage: 150 MG/M2; QD; PO
     Route: 048
     Dates: start: 20070327, end: 20070331
  2. TEMODAL [Suspect]
     Indication: ANAPLASTIC ASTROCYTOMA
     Dosage: 150 MG/M2; QD; PO
     Route: 048
     Dates: start: 20070424, end: 20070428
  3. PHENOBARBITAL TAB [Concomitant]
  4. MAGNESIUM OXIDE [Concomitant]
  5. MEVALOTIN [Concomitant]
  6. ISOBIDE [Concomitant]
  7. ZANTAC [Concomitant]
  8. RINDERON [Concomitant]

REACTIONS (1)
  - DEATH [None]
